FAERS Safety Report 5596072-1 (Version None)
Quarter: 2008Q1

REPORT INFORMATION
  Report Type: 
  Country: None (occurrence: None)
  Receive Date: 20080118
  Receipt Date: 20080107
  Transmission Date: 20080703
  Serious: Yes (Hospitalization)
  Sender: FDA-Public Use
  Company Number: GB-ROCHE-540360

PATIENT
  Age: 54 Year
  Sex: Female
  Weight: 89 kg

DRUGS (9)
  1. ORLISTAT [Suspect]
     Indication: OBESITY
     Route: 048
     Dates: start: 20070810
  2. EPILIM [Concomitant]
     Indication: EPILEPSY
     Route: 048
  3. METFORMIN HCL [Concomitant]
     Route: 048
  4. ASPIRIN [Concomitant]
     Indication: CARDIOVASCULAR EVENT PROPHYLAXIS
     Route: 048
  5. FUROSEMIDE [Concomitant]
     Indication: HYPERTENSION
     Route: 048
  6. DIAZEPAM [Concomitant]
     Indication: DEPRESSION
     Route: 048
  7. SEROXAT [Concomitant]
     Indication: DEPRESSION
     Route: 048
  8. DIHYDROCODEINE [Concomitant]
     Indication: ANALGESIA
     Route: 048
  9. MILPAR [Concomitant]
     Indication: CONSTIPATION
     Route: 048

REACTIONS (1)
  - ABDOMINAL STRANGULATED HERNIA [None]
